FAERS Safety Report 16599912 (Version 2)
Quarter: 2019Q3

REPORT INFORMATION
  Report Type: Report from Study
  Country: PR (occurrence: PR)
  Receive Date: 20190719
  Receipt Date: 20190918
  Transmission Date: 20191004
  Serious: No
  Sender: FDA-Public Use
  Company Number: PR-JNJFOC-20190716124

PATIENT
  Age: 48 Year
  Sex: Female

DRUGS (20)
  1. IMBRUVICA [Suspect]
     Active Substance: IBRUTINIB
     Indication: ACUTE MYELOID LEUKAEMIA
     Dosage: 280 MG, QD
     Route: 048
  2. SIROLIMUS. [Concomitant]
     Active Substance: SIROLIMUS
  3. CELLCEPT [Concomitant]
     Active Substance: MYCOPHENOLATE MOFETIL\MYCOPHENOLATE MOFETIL HYDROCHLORIDE
  4. TRIAMCINOLONE [Concomitant]
     Active Substance: TRIAMCINOLONE
  5. OMEPRAZOLE. [Concomitant]
     Active Substance: OMEPRAZOLE
  6. HYDROCORTISONE. [Concomitant]
     Active Substance: HYDROCORTISONE
  7. IMBRUVICA [Suspect]
     Active Substance: IBRUTINIB
     Dosage: 280 MG, QD
     Route: 048
     Dates: start: 20180831, end: 20190915
  8. BACTRIM [Concomitant]
     Active Substance: SULFAMETHOXAZOLE\TRIMETHOPRIM
  9. BECLOMETHASONE                     /00212601/ [Concomitant]
     Active Substance: BECLOMETHASONE
  10. TOPROL XL [Concomitant]
     Active Substance: METOPROLOL SUCCINATE
  11. URSODIOL. [Concomitant]
     Active Substance: URSODIOL
  12. MYCOPHENOLATE [Concomitant]
     Active Substance: MYCOPHENOLIC ACID
  13. FAMOTIDINE. [Concomitant]
     Active Substance: FAMOTIDINE
  14. CRESTOR [Concomitant]
     Active Substance: ROSUVASTATIN CALCIUM
  15. SYNTHROID [Concomitant]
     Active Substance: LEVOTHYROXINE SODIUM
  16. DICLOFENAC [Concomitant]
     Active Substance: DICLOFENAC
  17. VYTORIN [Concomitant]
     Active Substance: EZETIMIBE\SIMVASTATIN
  18. ACYCLOVIR                          /00587301/ [Concomitant]
     Active Substance: ACYCLOVIR
  19. VITAMIN B12 [Concomitant]
     Active Substance: CYANOCOBALAMIN
  20. DEXAMETHASONE. [Concomitant]
     Active Substance: DEXAMETHASONE

REACTIONS (1)
  - Blood test abnormal [Unknown]
